FAERS Safety Report 20802438 (Version 1)
Quarter: 2022Q2

REPORT INFORMATION
  Report Type: Spontaneous
  Country: US (occurrence: None)
  Receive Date: 20220507
  Receipt Date: 20220507
  Transmission Date: 20220721
  Serious: Yes (Other)
  Sender: FDA-Public Use
  Company Number: None

PATIENT
  Age: 46 Year
  Sex: Male

DRUGS (4)
  1. DIETARY SUPPLEMENT [Suspect]
     Active Substance: DIETARY SUPPLEMENT
     Dates: start: 20220506
  2. CIALIS [Suspect]
     Active Substance: TADALAFIL
  3. albertsons [Concomitant]
  4. Marlboro [Concomitant]

REACTIONS (3)
  - Feeling abnormal [None]
  - Suspected product quality issue [None]
  - Product measured potency issue [None]

NARRATIVE: CASE EVENT DATE: 20220307
